FAERS Safety Report 4913831-6 (Version None)
Quarter: 2006Q1

REPORT INFORMATION
  Report Type: 
  Country: None (occurrence: None)
  Receive Date: 20060113
  Receipt Date: 20051114
  Transmission Date: 20060701
  Serious: No
  Sender: FDA-Public Use
  Company Number: 2005SP003989

PATIENT
  Age: 44 Year
  Sex: Female

DRUGS (4)
  1. LUNESTA [Suspect]
     Indication: INSOMNIA
     Dosage: 3 MG; HS; ORAL; SEE IMAGE
     Route: 048
     Dates: start: 20050101, end: 20050101
  2. LUNESTA [Suspect]
     Indication: INSOMNIA
     Dosage: 3 MG; HS; ORAL; SEE IMAGE
     Route: 048
     Dates: start: 20050101, end: 20050101
  3. PRENATAL VITAMINS [Concomitant]
  4. LEXAPRO [Concomitant]

REACTIONS (1)
  - AMNESIA [None]
